FAERS Safety Report 7230245-7 (Version None)
Quarter: 2011Q1

REPORT INFORMATION
  Report Type: 
  Country: None (occurrence: None)
  Receive Date: 20110118
  Receipt Date: 20110106
  Transmission Date: 20110831
  Serious: Yes (Hospitalization, Other)
  Sender: FDA-Public Use
  Company Number: US-PFIZER INC-2010132626

PATIENT
  Sex: Female

DRUGS (3)
  1. METOPROLOL [Concomitant]
     Indication: BLOOD PRESSURE
     Dosage: UNK
     Dates: start: 20050101
  2. LISINOPRIL AND HYDROCHLOROTHIAZIDE [Concomitant]
     Indication: BLOOD PRESSURE
     Dosage: UNK
     Dates: start: 20050101
  3. CHANTIX [Suspect]
     Indication: SMOKING CESSATION THERAPY
     Dosage: UNK
     Dates: start: 20080801, end: 20080801

REACTIONS (4)
  - ABNORMAL DREAMS [None]
  - DEPRESSION [None]
  - SUICIDAL IDEATION [None]
  - AGITATION [None]
